FAERS Safety Report 23127966 (Version 6)
Quarter: 2024Q1

REPORT INFORMATION
  Report Type: Spontaneous
  Country: ES (occurrence: ES)
  Receive Date: 20231031
  Receipt Date: 20240220
  Transmission Date: 20240410
  Serious: Yes (Hospitalization)
  Sender: FDA-Public Use
  Company Number: ES-CELLTRION HEALTHCARE HUNGARY KFT-2023ES020390

PATIENT
  Age: 71 Year
  Sex: Female
  Weight: 76.4 kg

DRUGS (17)
  1. RITUXIMAB [Suspect]
     Active Substance: RITUXIMAB
     Indication: Follicular lymphoma
     Dosage: 690 MG (LAST DOSE PRIOR TO THE SERIOUS ADVERSE EVENT)
     Route: 042
  2. RITUXIMAB [Suspect]
     Active Substance: RITUXIMAB
     Dosage: 694 MG, CYCLIC, (375 MH/SQ.M) FOR 5 CYCLES
     Route: 042
     Dates: start: 20230720
  3. RITUXIMAB [Suspect]
     Active Substance: RITUXIMAB
     Dosage: LAST DOSES OF INCMOR00208/PLACEBO, LENALIDOMIDE AND RITUXIMAB, PRIOR TO THE SAE WAS TAKEN ON 02/OCT/
     Route: 042
     Dates: start: 20231002
  4. RITUXIMAB [Suspect]
     Active Substance: RITUXIMAB
     Dosage: INCMOR00208/PLACEBO AND RITUXIMAB PRIOR TO THE SAE OF FEVER WERE TAKEN ON 09/NOV/2023
     Route: 042
     Dates: start: 20231109, end: 20231113
  5. TAFASITAMAB-CXIX [Suspect]
     Active Substance: TAFASITAMAB-CXIX
     Indication: Follicular lymphoma
     Dosage: 974 MG
     Route: 065
     Dates: start: 20230720
  6. TAFASITAMAB-CXIX [Suspect]
     Active Substance: TAFASITAMAB-CXIX
     Dosage: LAST DOSE PRIOR TO THE SERIOUS ADVERSE EVENT
     Route: 065
  7. TAFASITAMAB-CXIX [Suspect]
     Active Substance: TAFASITAMAB-CXIX
     Dosage: LAST DOSES OF INCMOR00208/PLACEBO, LENALIDOMIDE AND RITUXIMAB, PRIOR TO THE SAE WAS TAKEN ON 02OCT20
     Route: 065
     Dates: start: 20231002
  8. TAFASITAMAB-CXIX [Suspect]
     Active Substance: TAFASITAMAB-CXIX
     Dosage: LAST DOSE PRIOR TO THE SERIOUS ADVERSE EVENT
     Route: 065
     Dates: start: 20231109, end: 20231113
  9. TAFASITAMAB-CXIX [Suspect]
     Active Substance: TAFASITAMAB-CXIX
     Dosage: UNK
     Route: 065
     Dates: start: 20231122
  10. TAFASITAMAB-CXIX [Suspect]
     Active Substance: TAFASITAMAB-CXIX
     Dosage: UNK
     Route: 065
     Dates: start: 20231207
  11. LENALIDOMIDE [Suspect]
     Active Substance: LENALIDOMIDE
     Indication: Follicular lymphoma
     Dosage: LAST DOSE PRIOR TO THE SERIOUS ADVERSE EVENT
     Route: 065
  12. LENALIDOMIDE [Suspect]
     Active Substance: LENALIDOMIDE
     Dosage: 20 MG, QD, DAYS 1-21
     Route: 065
     Dates: start: 20230720, end: 20230924
  13. LENALIDOMIDE [Suspect]
     Active Substance: LENALIDOMIDE
     Dosage: LAST DOSES OF INCMOR00208/PLACEBO, LENALIDOMIDE AND RITUXIMAB, PRIOR TO THE SAE WAS TAKEN ON 02/OCT/
     Route: 065
     Dates: start: 20231002
  14. LENALIDOMIDE [Suspect]
     Active Substance: LENALIDOMIDE
     Dosage: LAST DOSE OF LENALIDOMIDE PRIOR TO THE SAE OF FEVER WAS TAKEN ON 12NOV2023
     Route: 065
     Dates: start: 20231109, end: 20231112
  15. LENALIDOMIDE [Suspect]
     Active Substance: LENALIDOMIDE
     Dosage: THE LAST DOSES OF INCMOR00208/PLACEBO, LENALIDOMIDE, AND RITUXIMAB PRIOR TO THE SAE OF LUNG INFECTIO
     Route: 065
     Dates: start: 20231116, end: 20231122
  16. LENALIDOMIDE [Suspect]
     Active Substance: LENALIDOMIDE
     Route: 065
     Dates: start: 20231207
  17. LEVOFLOXACIN [Concomitant]
     Active Substance: LEVOFLOXACIN

REACTIONS (3)
  - COVID-19 pneumonia [Recovered/Resolved]
  - Pneumonia [Recovered/Resolved]
  - Respiratory tract infection [Recovered/Resolved]

NARRATIVE: CASE EVENT DATE: 20230824
